FAERS Safety Report 6444018-6 (Version None)
Quarter: 2009Q4

REPORT INFORMATION
  Report Type: 
  Country: None (occurrence: None)
  Receive Date: 20091116
  Receipt Date: 20091116
  Transmission Date: 20100525
  Serious: No
  Sender: FDA-Public Use
  Company Number: None

PATIENT
  Age: 64 Year
  Sex: Male
  Weight: 110 kg

DRUGS (3)
  1. LISINOPRIL AND HYDROCHLOROTHIAZIDE [Suspect]
     Indication: HYPERTENSION
     Dosage: LISINOPRIL/HCTZ 20/12.5MG, 2 TABS QD PO
     Route: 048
     Dates: start: 20090515, end: 20090709
  2. METFORMIN HCL [Concomitant]
  3. ASPIRIN [Concomitant]

REACTIONS (3)
  - DIARRHOEA [None]
  - DRUG ERUPTION [None]
  - SKIN EXFOLIATION [None]
